FAERS Safety Report 4944491-6 (Version None)
Quarter: 2006Q1

REPORT INFORMATION
  Report Type: 
  Country: None (occurrence: None)
  Receive Date: 20060315
  Receipt Date: 20060307
  Transmission Date: 20060701
  Serious: Yes (Other)
  Sender: FDA-Public Use
  Company Number: PHBS2006US03626

PATIENT
  Age: 14 Year
  Sex: Female

DRUGS (1)
  1. OXCARBAZEPINE [Suspect]
     Dosage: 300 MG AM/600 MG PM
     Route: 065

REACTIONS (13)
  - CONSTIPATION [None]
  - DRY SKIN [None]
  - FATIGUE [None]
  - FEELING ABNORMAL [None]
  - HYPOTHYROIDISM [None]
  - LETHARGY [None]
  - MENSTRUATION IRREGULAR [None]
  - PERIORBITAL OEDEMA [None]
  - TEMPERATURE INTOLERANCE [None]
  - TENDON DISORDER [None]
  - THYROXINE FREE DECREASED [None]
  - TRICHORRHEXIS [None]
  - WEIGHT INCREASED [None]
